FAERS Safety Report 14176994 (Version 1)
Quarter: 2017Q4

REPORT INFORMATION
  Report Type: Spontaneous
  Country: US (occurrence: US)
  Receive Date: 20171110
  Receipt Date: 20171110
  Transmission Date: 20180321
  Serious: Yes (Disabling)
  Sender: FDA-Public Use
  Company Number: None

PATIENT
  Sex: Female
  Weight: 57.6 kg

DRUGS (6)
  1. VITAMIN B [Concomitant]
     Active Substance: VITAMIN B
  2. PATANOL EYEDROPS [Concomitant]
  3. 1% HYDROCORTISONE [Suspect]
     Active Substance: HYDROCORTISONE
     Indication: ECZEMA
     Route: 061
  4. VITAMIN D [Concomitant]
     Active Substance: CHOLECALCIFEROL
  5. VITAMIN C [Concomitant]
     Active Substance: ASCORBIC ACID
  6. FISH OIL [Concomitant]
     Active Substance: FISH OIL

REACTIONS (9)
  - Insomnia [None]
  - Drug dependence [None]
  - Pruritus [None]
  - Withdrawal syndrome [None]
  - Dry skin [None]
  - Erythema [None]
  - Red man syndrome [None]
  - Skin exfoliation [None]
  - Drug ineffective [None]

NARRATIVE: CASE EVENT DATE: 20110929
